FAERS Safety Report 12928993 (Version 3)
Quarter: 2017Q3

REPORT INFORMATION
  Report Type: Spontaneous
  Country: BR (occurrence: BR)
  Receive Date: 20161110
  Receipt Date: 20170725
  Transmission Date: 20171127
  Serious: Yes (Other)
  Sender: FDA-Public Use
  Company Number: ALCN2016BR007525

PATIENT
  Sex: Male
  Weight: 82 kg

DRUGS (7)
  1. AZORGA [Suspect]
     Active Substance: BRINZOLAMIDE\TIMOLOL MALEATE
     Indication: OCULAR HYPERTENSION
  2. PRED FORT [Concomitant]
     Active Substance: PREDNISOLONE ACETATE
     Indication: PRODUCT USED FOR UNKNOWN INDICATION
     Route: 047
  3. SYSTANE (HYPROMELLOSE 2910 (4000 MPA.S)) [Suspect]
     Active Substance: HYPROMELLOSE 2910 (4000 MPA.S)
     Indication: EYE LUBRICATION THERAPY
     Dosage: (WHEN HIS EYES BURN, HE USES AT LEAST FOUR TO FIVE TIMES PER DAY)
     Route: 047
  4. AZORGA [Suspect]
     Active Substance: BRINZOLAMIDE\TIMOLOL MALEATE
     Indication: RETINAL DISORDER
     Dosage: UNK UNK, BID
     Route: 047
     Dates: start: 2014
  5. AZOPT [Suspect]
     Active Substance: BRINZOLAMIDE
     Indication: OCULAR HYPERTENSION
     Dosage: UNK UNK, BID
     Route: 047
     Dates: end: 2014
  6. HYPERTONIC [Concomitant]
     Indication: HYPERNATRAEMIA
     Route: 047
  7. COMBIGAN [Concomitant]
     Active Substance: BRIMONIDINE TARTRATE\TIMOLOL MALEATE
     Indication: PRODUCT USED FOR UNKNOWN INDICATION
     Route: 047

REACTIONS (6)
  - Cell death [Unknown]
  - Retinal detachment [Not Recovered/Not Resolved]
  - Accident [Recovered/Resolved]
  - Corneal disorder [Not Recovered/Not Resolved]
  - Visual impairment [Unknown]
  - Open globe injury [Unknown]

NARRATIVE: CASE EVENT DATE: 2014
